FAERS Safety Report 9214197 (Version 1)
Quarter: 2013Q2

REPORT INFORMATION
  Report Type: Spontaneous
  Country: US (occurrence: None)
  Receive Date: 20130404
  Receipt Date: 20130404
  Transmission Date: 20140414
  Serious: Yes (Life-Threatening)
  Sender: FDA-Public Use
  Company Number: None

PATIENT
  Age: 53 Year
  Sex: Female
  Weight: 72.58 kg

DRUGS (1)
  1. LITHIUM [Suspect]
     Dosage: DAILY ORALLY
     Route: 048
     Dates: start: 2009, end: 2010

REACTIONS (5)
  - Catatonia [None]
  - Drooling [None]
  - Weight decreased [None]
  - Insomnia [None]
  - Restlessness [None]
